FAERS Safety Report 8893586 (Version 1)
Quarter: 2012Q4

REPORT INFORMATION
  Report Type: 
  Country: US (occurrence: US)
  Receive Date: 20121107
  Receipt Date: 20121107
  Transmission Date: 20130627
  Serious: No
  Sender: FDA-Public Use
  Company Number: US-AMGEN-USASP2011060654

PATIENT
  Age: 33 Year
  Sex: Female

DRUGS (5)
  1. ENBREL [Suspect]
     Indication: PRODUCT USED FOR UNKNOWN INDICATION
     Dosage: 50 mg, qwk
  2. GLUCOPHAGE [Concomitant]
     Dosage: UNK
  3. PAXIL [Concomitant]
     Dosage: UNK
  4. AZOR                               /00595201/ [Concomitant]
     Dosage: UNK
  5. VITAMIN D /00107901/ [Concomitant]
     Dosage: UNK

REACTIONS (2)
  - Otitis media [Unknown]
  - Upper respiratory tract infection [Unknown]
